FAERS Safety Report 19242399 (Version 1)
Quarter: 2021Q2

REPORT INFORMATION
  Report Type: Report from Study
  Country: DE (occurrence: DE)
  Receive Date: 20210511
  Receipt Date: 20210511
  Transmission Date: 20210717
  Serious: Yes (Hospitalization, Other)
  Sender: FDA-Public Use
  Company Number: DE-INCYTE CORPORATION-2019IN005503

PATIENT

DRUGS (13)
  1. JAKAVI [Suspect]
     Active Substance: RUXOLITINIB
     Dosage: 15 MG, BID
     Route: 048
     Dates: start: 20190523
  2. DULOXETINE. [Suspect]
     Active Substance: DULOXETINE
     Indication: PRODUCT USED FOR UNKNOWN INDICATION
     Dosage: 10 MG, UNK
     Route: 048
     Dates: start: 20190425, end: 20190502
  3. JAKAVI [Suspect]
     Active Substance: RUXOLITINIB
     Dosage: 20 MG, BID
     Route: 048
     Dates: start: 20180725, end: 20190522
  4. DULOXALTA [Concomitant]
     Active Substance: DULOXETINE HYDROCHLORIDE
     Indication: DIABETIC NEUROPATHY
     Dosage: 30 MG, QD
     Route: 048
  5. VALSARTAN. [Concomitant]
     Active Substance: VALSARTAN
     Indication: HYPERTENSION
     Dosage: 1?0?1/2
     Route: 048
  6. ACNATAC [Concomitant]
     Active Substance: CLINDAMYCIN PHOSPHATE\TRETINOIN
     Indication: SKIN DISORDER
     Dosage: 10 MG, QD
     Route: 048
  7. GLUCOSAMIN [GLUCOSAMINE] [Concomitant]
     Indication: ARTHROPATHY
     Dosage: 1200 OT
     Route: 048
  8. JAKAVI [Suspect]
     Active Substance: RUXOLITINIB
     Indication: POLYCYTHAEMIA VERA
     Dosage: 15 MG, BID
     Route: 048
     Dates: start: 20180704, end: 20180724
  9. BETNESOL V [Concomitant]
     Indication: SKIN DISORDER
     Dosage: 0.1 %, QW
     Route: 048
  10. MARCUMAR [Concomitant]
     Active Substance: PHENPROCOUMON
     Indication: THROMBOSIS
     Dosage: 9 OT, UNK
     Route: 048
  11. ROSICED [Concomitant]
     Indication: SKIN DISORDER
     Dosage: 7.5 MG, QD
     Route: 048
  12. PRAMIPEXOL [Concomitant]
     Active Substance: PRAMIPEXOLE
     Indication: RESTLESS LEGS SYNDROME
     Dosage: 0.18 MG, QD
     Route: 048
  13. DOXYDERMA [Concomitant]
     Indication: SKIN DISORDER
     Dosage: 50 MG, QD
     Route: 048

REACTIONS (3)
  - Weight increased [Not Recovered/Not Resolved]
  - Dyspnoea exertional [Recovered/Resolved]
  - Weight decreased [Unknown]

NARRATIVE: CASE EVENT DATE: 20190423
